FAERS Safety Report 26006576 (Version 1)
Quarter: 2025Q4

REPORT INFORMATION
  Report Type: Spontaneous
  Country: AU (occurrence: AU)
  Receive Date: 20251106
  Receipt Date: 20251106
  Transmission Date: 20260117
  Serious: Yes (Death)
  Sender: MYLAN
  Company Number: AU-MYLANLABS-2025M1094748

PATIENT
  Sex: Male

DRUGS (1)
  1. CLOZARIL [Suspect]
     Active Substance: CLOZAPINE
     Indication: Schizophrenia
     Dosage: 150 MILLIGRAM

REACTIONS (2)
  - Large intestinal obstruction [Fatal]
  - Rectosigmoid cancer [Fatal]
